FAERS Safety Report 11403884 (Version 1)
Quarter: 2015Q3

REPORT INFORMATION
  Report Type: Spontaneous
  Country: PT (occurrence: PT)
  Receive Date: 20150821
  Receipt Date: 20150821
  Transmission Date: 20151125
  Serious: Yes (Other)
  Sender: FDA-Public Use
  Company Number: PT-ACTAVIS-2015-17354

PATIENT
  Age: 4 Year
  Sex: Male

DRUGS (2)
  1. NIMOTUZUMAB [Suspect]
     Active Substance: NIMOTUZUMAB
     Indication: PRODUCT USED FOR UNKNOWN INDICATION
     Dosage: UNK, CYCLICAL (CIMAHER - INFUSION 4 ML/HOUR)
     Route: 042
     Dates: start: 20150729
  2. VINORRELBINA ACTAVIS [Suspect]
     Active Substance: VINORELBINE TARTRATE
     Indication: PRODUCT USED FOR UNKNOWN INDICATION
     Dosage: UNK, CYCLICAL (INFUSION: 4 ML/HOUR)
     Route: 042
     Dates: start: 20150729

REACTIONS (2)
  - Headache [Recovered/Resolved]
  - Crying [Recovered/Resolved]

NARRATIVE: CASE EVENT DATE: 20150729
